FAERS Safety Report 5284359-1 (Version None)
Quarter: 2007Q1

REPORT INFORMATION
  Report Type: 
  Country: None (occurrence: None)
  Receive Date: 20070327
  Receipt Date: 20070315
  Transmission Date: 20070707
  Serious: Yes (Hospitalization)
  Sender: FDA-Public Use
  Company Number: ALA_0019_2007

PATIENT
  Age: 13 Year
  Sex: Male

DRUGS (5)
  1. MESALAZINE [Suspect]
     Indication: CROHN'S DISEASE
     Dosage: 1500 MG QDAY
  2. MESALAZINE [Suspect]
     Indication: CROHN'S DISEASE
     Dosage: 1500 MG QDAY UNK
  3. MESALAZINE [Suspect]
     Indication: CROHN'S DISEASE
     Dosage: 750 MG QDAY
  4. AZATHIOPRINE [Concomitant]
  5. AZATHIOPRINE [Concomitant]

REACTIONS (16)
  - ADVERSE DRUG REACTION [None]
  - ANAEMIA [None]
  - BLOOD FIBRINOGEN INCREASED [None]
  - C-REACTIVE PROTEIN INCREASED [None]
  - CONDITION AGGRAVATED [None]
  - ERYTHEMA NODOSUM [None]
  - GAIT DISTURBANCE [None]
  - INFECTIVE MYOSITIS [None]
  - MUSCLE SWELLING [None]
  - MUSCULAR WEAKNESS [None]
  - MYALGIA [None]
  - MYOPATHY [None]
  - OEDEMA PERIPHERAL [None]
  - PAIN IN EXTREMITY [None]
  - RED BLOOD CELL SEDIMENTATION RATE INCREASED [None]
  - VIRAL UPPER RESPIRATORY TRACT INFECTION [None]
